FAERS Safety Report 5416826-1 (Version None)
Quarter: 2007Q3

REPORT INFORMATION
  Report Type: 
  Country: None (occurrence: None)
  Receive Date: 20070815
  Receipt Date: 20070815
  Transmission Date: 20080115
  Serious: Yes (Hospitalization)
  Sender: FDA-Public Use
  Company Number: None

PATIENT
  Sex: Male
  Weight: 79.3795 kg

DRUGS (3)
  1. GEMCITABINE HCL [Suspect]
     Indication: NON-SMALL CELL LUNG CANCER
     Dosage: 1000 DAY 1,8 Q21 DAYS IV
     Route: 042
     Dates: start: 20070618, end: 20070727
  2. CARBOPLATIN [Suspect]
     Dosage: 5 AUC DAY 1 Q 21 DAYS IV
     Route: 042
     Dates: start: 20070618, end: 20070720
  3. VELCADE [Suspect]
     Indication: NON-SMALL CELL LUNG CANCER
     Dosage: 1 MG DAY 1,8 Q 21 DAYS IV
     Route: 042
     Dates: start: 20070618, end: 20070727

REACTIONS (4)
  - DYSPNOEA [None]
  - NON-CARDIAC CHEST PAIN [None]
  - PLEURAL EFFUSION [None]
  - PLEURITIC PAIN [None]
